FAERS Safety Report 6439710-3 (Version None)
Quarter: 2009Q4

REPORT INFORMATION
  Report Type: 
  Country: None (occurrence: None)
  Receive Date: 20091113
  Receipt Date: 20091030
  Transmission Date: 20100525
  Serious: Yes (Hospitalization)
  Sender: FDA-Public Use
  Company Number: DE-B.I. PHARMACEUTICALS,INC./RIDGEFIELD-2009-DE-06783DE

PATIENT
  Age: 71 Year
  Sex: Female
  Weight: 68 kg

DRUGS (8)
  1. MICARDIS [Suspect]
     Indication: HYPERTENSION
     Dosage: 80 MG
     Route: 048
     Dates: start: 19980101, end: 20090107
  2. ENALAPRIL [Suspect]
     Indication: HYPERTENSION
     Dosage: 5 MG
     Route: 048
     Dates: start: 20000101, end: 20090107
  3. FURESIS [Suspect]
     Indication: HYPERTENSION
     Dosage: 40 MG
     Route: 048
     Dates: end: 20090107
  4. DOPEGYT [Suspect]
     Indication: HYPERTENSION
     Dosage: 500 MG
     Route: 048
     Dates: start: 20000101, end: 20090107
  5. ACTRAPID [Concomitant]
     Indication: TYPE 2 DIABETES MELLITUS
     Dosage: 8 U
     Route: 058
     Dates: start: 19900101
  6. ASPIRIN [Concomitant]
     Indication: ISCHAEMIC HEART DISEASE PROPHYLAXIS
     Dosage: 100 MG
     Route: 048
     Dates: start: 20000101
  7. DIGITOXIN TAB [Concomitant]
     Indication: CARDIAC FAILURE
     Dosage: 0.07 MG
     Route: 048
     Dates: end: 20090107
  8. LEVOTHYROXINE SODIUM [Concomitant]
     Indication: HYPOTHYROIDISM
     Dosage: 175 MCG
     Route: 048
     Dates: start: 20080501

REACTIONS (4)
  - DEHYDRATION [None]
  - DRUG INTERACTION [None]
  - HYPOTENSION [None]
  - RENAL FAILURE ACUTE [None]
